FAERS Safety Report 5065250-2 (Version None)
Quarter: 2006Q3

REPORT INFORMATION
  Report Type: 
  Country: None (occurrence: None)
  Receive Date: 20060707
  Receipt Date: 20050929
  Transmission Date: 20061208
  Serious: Yes (Life-Threatening, Hospitalization)
  Sender: FDA-Public Use
  Company Number: SUS1-2003-00369

PATIENT
  Age: 59 Year
  Sex: Female

DRUGS (9)
  1. PENTASA [Suspect]
     Indication: COLITIS ULCERATIVE
     Dosage: 250 MG, ORAL
     Route: 048
  2. SALMETEROL XINAFOATE (SALMETEROL XINAFOATE) [Concomitant]
  3. FLUTICASONE PROPIONATE [Concomitant]
  4. SALBUTAMOL (SALBUTAMOL) [Concomitant]
  5. OMEPRAZOLE [Concomitant]
  6. INSULIN HUMAN (INSULIN HUMAN) [Concomitant]
  7. DOMPERIDONE (DOMPERIDONE) [Concomitant]
  8. THIAMINE HCL [Concomitant]
  9. URAPIDIL (URAPIDIL) [Concomitant]

REACTIONS (2)
  - DYSPNOEA EXERTIONAL [None]
  - NEPHROTIC SYNDROME [None]
